FAERS Safety Report 5688465-9 (Version None)
Quarter: 2008Q1

REPORT INFORMATION
  Report Type: 
  Country: None (occurrence: None)
  Receive Date: 20080331
  Receipt Date: 20080117
  Transmission Date: 20080703
  Serious: Yes (Other)
  Sender: FDA-Public Use
  Company Number: CO-BAYER-200810692LA

PATIENT
  Age: 20 Year
  Sex: Female
  Weight: 50 kg

DRUGS (1)
  1. YASMIN [Suspect]
     Indication: ORAL CONTRACEPTION
     Route: 048
     Dates: start: 20070110, end: 20080108

REACTIONS (3)
  - ABORTION INCOMPLETE [None]
  - PREGNANCY ON ORAL CONTRACEPTIVE [None]
  - UTERINE HAEMORRHAGE [None]
